FAERS Safety Report 19432024 (Version 2)
Quarter: 2022Q1

REPORT INFORMATION
  Report Type: Spontaneous
  Country: US (occurrence: CA)
  Receive Date: 20210618
  Receipt Date: 20220309
  Transmission Date: 20220423
  Serious: Yes (Death, Other)
  Sender: FDA-Public Use
  Company Number: US-SPECGX-T202101469

PATIENT
  Age: 11 Year
  Sex: Male
  Weight: 25 kg

DRUGS (13)
  1. METHADOSE [Suspect]
     Active Substance: METHADONE HYDROCHLORIDE
     Indication: Pain
     Dosage: UNK
     Route: 065
  2. CANNABIDIOL [Suspect]
     Active Substance: CANNABIDIOL
     Indication: Pain
     Dosage: UNK
     Route: 065
  3. DEXAMETHASONE SODIUM PHOSPHATE [Suspect]
     Active Substance: DEXAMETHASONE SODIUM PHOSPHATE
     Indication: Neoplasm progression
     Dosage: UNK
     Route: 065
  4. DINUTUXIMAB [Suspect]
     Active Substance: DINUTUXIMAB
     Indication: Neuroblastoma recurrent
     Dosage: 3.5 MG/ML
     Route: 042
  5. DINUTUXIMAB [Suspect]
     Active Substance: DINUTUXIMAB
     Indication: Metastases to liver
     Dosage: UNK, CYCLIC
     Route: 042
  6. DINUTUXIMAB [Suspect]
     Active Substance: DINUTUXIMAB
     Indication: Metastases to bone
  7. FAMOTIDINE [Suspect]
     Active Substance: FAMOTIDINE
     Indication: Gastric disorder
     Dosage: UNK
     Route: 065
  8. GABAPENTIN [Suspect]
     Active Substance: GABAPENTIN
     Indication: Pain
     Dosage: UNK
     Route: 065
  9. HYDROMORPHONE HYDROCHLORIDE [Suspect]
     Active Substance: HYDROMORPHONE HYDROCHLORIDE
     Indication: Pain
     Dosage: UNK
     Route: 065
  10. IRINOTECAN HYDROCHLORIDE [Suspect]
     Active Substance: IRINOTECAN HYDROCHLORIDE
     Indication: Neuroblastoma recurrent
     Dosage: UNK
     Route: 065
  11. LORAZEPAM [Suspect]
     Active Substance: LORAZEPAM
     Indication: Anxiety
     Dosage: UNK
     Route: 042
  12. LORBRENA [Suspect]
     Active Substance: LORLATINIB
     Indication: Neuroblastoma recurrent
     Dosage: 100 MILLIGRAM, QD
     Route: 048
  13. TEMOZOLOMIDE [Suspect]
     Active Substance: TEMOZOLOMIDE
     Indication: Neuroblastoma recurrent
     Dosage: UNK
     Route: 065

REACTIONS (13)
  - Metastases to liver [Fatal]
  - Anaemia [Fatal]
  - Leukocytosis [Fatal]
  - Malignant cranial nerve neoplasm [Fatal]
  - Metastases to spine [Fatal]
  - Pallor [Fatal]
  - Neuroblastoma recurrent [Fatal]
  - Retro-orbital neoplasm [Fatal]
  - Nerve compression [Fatal]
  - Fatigue [Fatal]
  - Thrombocytopenia [Fatal]
  - Product use issue [Unknown]
  - Off label use [Unknown]
